FAERS Safety Report 7913190-0 (Version None)
Quarter: 2011Q4

REPORT INFORMATION
  Report Type: 
  Country: None (occurrence: None)
  Receive Date: 20111114
  Receipt Date: 20111103
  Transmission Date: 20120403
  Serious: Yes (Other)
  Sender: FDA-Public Use
  Company Number: PHHY2011ES097885

PATIENT
  Age: 78 Year
  Sex: Male

DRUGS (3)
  1. VINORELBINE [Suspect]
     Indication: SQUAMOUS CELL CARCINOMA
     Dosage: 25 MG/M2 AT A CONCENTRATION OF 0.45 MG/ML IN 100ML OF SODIUM CHLORIDE
  2. VINORELBINE [Suspect]
     Dosage: 60 MG/M2
  3. CARBOPLATIN [Concomitant]
     Indication: SQUAMOUS CELL CARCINOMA
     Dosage: 125 MG/M2

REACTIONS (9)
  - DISCOMFORT [None]
  - PAIN [None]
  - PHLEBITIS [None]
  - SKIN ULCER [None]
  - SKIN EXFOLIATION [None]
  - ERYTHEMA [None]
  - PYREXIA [None]
  - RECALL PHENOMENON [None]
  - OEDEMA PERIPHERAL [None]
